FAERS Safety Report 21122449 (Version 2)
Quarter: 2022Q3

REPORT INFORMATION
  Report Type: Spontaneous
  Country: US (occurrence: None)
  Receive Date: 20220723
  Receipt Date: 20220804
  Transmission Date: 20221027
  Serious: Yes (Hospitalization)
  Sender: FDA-Public Use
  Company Number: 2022A257188

PATIENT
  Age: 29172 Day
  Sex: Male

DRUGS (2)
  1. FASENRA [Suspect]
     Active Substance: BENRALIZUMAB
     Indication: Asthma
     Route: 058
     Dates: start: 2020, end: 202201
  2. FASENRA [Suspect]
     Active Substance: BENRALIZUMAB
     Indication: Asthma
     Route: 058
     Dates: end: 20220721

REACTIONS (10)
  - Dysphagia [Recovered/Resolved]
  - Hyponatraemia [Recovered/Resolved]
  - Asthma [Not Recovered/Not Resolved]
  - Pulmonary thrombosis [Unknown]
  - Chest pain [Recovered/Resolved]
  - Diverticulitis [Recovered/Resolved]
  - Multiple allergies [Not Recovered/Not Resolved]
  - Asthenia [Recovered/Resolved]
  - Arthritis [Not Recovered/Not Resolved]
  - Product dose omission issue [Not Recovered/Not Resolved]

NARRATIVE: CASE EVENT DATE: 20211006
